FAERS Safety Report 6522720-5 (Version None)
Quarter: 2009Q4

REPORT INFORMATION
  Report Type: 
  Country: None (occurrence: None)
  Receive Date: 20091222
  Receipt Date: 20091214
  Transmission Date: 20100525
  Serious: Yes (Hospitalization)
  Sender: FDA-Public Use
  Company Number: 2009AL007776

PATIENT
  Age: 28 Year
  Sex: Male

DRUGS (1)
  1. NALTREXONE HYDROCHLORIDE [Suspect]
     Indication: DRUG DEPENDENCE
     Dosage: 25 MG;X1;PO
     Route: 048

REACTIONS (13)
  - AGITATION [None]
  - CONFUSIONAL STATE [None]
  - DIARRHOEA [None]
  - DRUG WITHDRAWAL SYNDROME [None]
  - FAECAL INCONTINENCE [None]
  - INCOHERENT [None]
  - INSOMNIA [None]
  - MYDRIASIS [None]
  - PAIN IN EXTREMITY [None]
  - POSTURING [None]
  - RESTLESSNESS [None]
  - SINUS TACHYCARDIA [None]
  - UNRESPONSIVE TO STIMULI [None]
